FAERS Safety Report 8872294 (Version 1)
Quarter: 2012Q4

REPORT INFORMATION
  Report Type: Spontaneous
  Country: US (occurrence: None)
  Receive Date: 20121010
  Receipt Date: 20121010
  Transmission Date: 20130627
  Serious: Yes (Other)
  Sender: FDA-Public Use
  Company Number: 2012SP003196

PATIENT

DRUGS (5)
  1. OXALIPLATIN [Suspect]
     Indication: NEOPLASM MALIGNANT
  2. FLUOROURACIL [Suspect]
  3. IRINOTECAN [Suspect]
  4. BEVACIZUMAB [Suspect]
  5. FOLINIC ACID [Suspect]

REACTIONS (3)
  - Disease progression [None]
  - Blood bilirubin increased [None]
  - Neoplasm malignant [None]
